FAERS Safety Report 5629546-5 (Version None)
Quarter: 2008Q1

REPORT INFORMATION
  Report Type: 
  Country: None (occurrence: None)
  Receive Date: 20080214
  Receipt Date: 20080214
  Transmission Date: 20080703
  Serious: No
  Sender: FDA-Public Use
  Company Number: None

PATIENT
  Sex: Female

DRUGS (1)
  1. PROVENTAL HFC ALBUTEROL SULFATE [Suspect]

REACTIONS (4)
  - BLISTER [None]
  - OROPHARYNGEAL BLISTERING [None]
  - PHARYNGEAL DISORDER [None]
  - TONGUE BLISTERING [None]
